FAERS Safety Report 5131414-2 (Version None)
Quarter: 2006Q4

REPORT INFORMATION
  Report Type: 
  Country: None (occurrence: None)
  Receive Date: 20061020
  Receipt Date: 20060726
  Transmission Date: 20070319
  Serious: Yes (Death, Hospitalization)
  Sender: FDA-Public Use
  Company Number: GB-GLAXOSMITHKLINE-B0432243A

PATIENT
  Age: 91 Year
  Sex: Female

DRUGS (5)
  1. DIGOXIN [Suspect]
     Indication: ATRIAL FIBRILLATION
     Route: 048
  2. IBUPROFEN [Suspect]
     Indication: OSTEOARTHRITIS
     Route: 061
  3. DICLOFENAC [Suspect]
     Indication: OSTEOARTHRITIS
     Route: 061
  4. SPIRONOLACTONE [Suspect]
     Indication: HYPERTENSION
  5. BUMETANIDE [Suspect]
     Indication: HYPERTENSION

REACTIONS (4)
  - BLOOD CREATININE INCREASED [None]
  - BLOOD POTASSIUM INCREASED [None]
  - BLOOD UREA INCREASED [None]
  - RENAL FAILURE [None]
